FAERS Safety Report 4500523-0 (Version None)
Quarter: 2004Q4

REPORT INFORMATION
  Report Type: 
  Country: None (occurrence: None)
  Receive Date: 20041112
  Receipt Date: 20041112
  Transmission Date: 20050328
  Serious: Yes (Other)
  Sender: FDA-Public Use
  Company Number: None

PATIENT
  Sex: Female
  Weight: 130.1823 kg

DRUGS (2)
  1. CIPRO [Suspect]
     Indication: DISEASE RECURRENCE
     Dosage: 500 MG ONE PO BID X 10D
     Route: 048
     Dates: end: 20041102
  2. CIPRO [Suspect]
     Indication: ORAL INFECTION
     Dosage: 500 MG ONE PO BID X 10D
     Route: 048
     Dates: end: 20041102

REACTIONS (3)
  - ABDOMINAL PAIN [None]
  - DIARRHOEA [None]
  - PHARMACEUTICAL PRODUCT COMPLAINT [None]
